FAERS Safety Report 4382347-0 (Version None)
Quarter: 2004Q2

REPORT INFORMATION
  Report Type: 
  Country: None (occurrence: None)
  Receive Date: 20040622
  Receipt Date: 20040612
  Transmission Date: 20050107
  Serious: Yes (Other)
  Sender: FDA-Public Use
  Company Number: PHEH2004US06482

PATIENT
  Age: 59 Year
  Sex: Male
  Weight: 140 kg

DRUGS (4)
  1. AREDIA [Suspect]
     Indication: MULTIPLE MYELOMA
     Dosage: 90 MG, QMO
  2. ZOMETA [Suspect]
     Indication: MULTIPLE MYELOMA
     Dosage: 4 MG, QMO
  3. THALIDOMIDE [Concomitant]
  4. DECADRON [Concomitant]

REACTIONS (6)
  - BONE LESION [None]
  - HYPOAESTHESIA [None]
  - IMPAIRED HEALING [None]
  - PAIN IN JAW [None]
  - SWELLING [None]
  - TOOTH EXTRACTION [None]
